FAERS Safety Report 8936694 (Version 1)
Quarter: 2012Q4

REPORT INFORMATION
  Report Type: 
  Country: GB (occurrence: GB)
  Receive Date: 20121130
  Receipt Date: 20121130
  Transmission Date: 20130627
  Serious: Yes (Death, Other)
  Sender: FDA-Public Use
  Company Number: GB-ROCHE-1161376

PATIENT
  Age: 22 Year
  Sex: Male

DRUGS (1)
  1. ROACCUTANE [Suspect]
     Indication: PRODUCT USED FOR UNKNOWN INDICATION
     Route: 065
     Dates: start: 20031212, end: 20040108

REACTIONS (4)
  - Completed suicide [Fatal]
  - Negative thoughts [Unknown]
  - Insomnia [Unknown]
  - Disturbance in attention [Unknown]
